FAERS Safety Report 16384950 (Version 4)
Quarter: 2019Q3

REPORT INFORMATION
  Report Type: Report from Study
  Country: US (occurrence: US)
  Receive Date: 20190603
  Receipt Date: 20190819
  Transmission Date: 20191004
  Serious: Yes (Other)
  Sender: FDA-Public Use
  Company Number: US-JNJFOC-20190539332

PATIENT
  Age: 47 Year
  Sex: Female

DRUGS (6)
  1. ADDERALL [Suspect]
     Active Substance: AMPHETAMINE ASPARTATE\AMPHETAMINE SULFATE\DEXTROAMPHETAMINE SACCHARATE\DEXTROAMPHETAMINE SULFATE
     Indication: ATTENTION DEFICIT/HYPERACTIVITY DISORDER
     Route: 048
  2. FOCALIN [Suspect]
     Active Substance: DEXMETHYLPHENIDATE HYDROCHLORIDE
     Indication: ATTENTION DEFICIT/HYPERACTIVITY DISORDER
     Route: 048
  3. VRAYLAR [Suspect]
     Active Substance: CARIPRAZINE
     Indication: BIPOLAR DISORDER
     Route: 048
  4. SPRAVATO [Suspect]
     Active Substance: ESKETAMINE
  5. TRINTELLIX [Concomitant]
     Active Substance: VORTIOXETINE HYDROBROMIDE
     Indication: DEPRESSION
     Route: 048
  6. SPRAVATO [Suspect]
     Active Substance: ESKETAMINE
     Indication: DEPRESSION
     Dosage: 28 MG, 56 MG, 84 MG TWICE WEEKLY FOR 4 WEEKS THEN ONCE WEEKLY FOR 1 WEEK
     Dates: start: 20190523

REACTIONS (10)
  - General physical health deterioration [Recovered/Resolved]
  - Accident [Recovered/Resolved]
  - Road traffic accident [Recovered/Resolved]
  - Altered visual depth perception [Recovered/Resolved]
  - Feeling drunk [Recovered/Resolved]
  - Somnolence [Unknown]
  - Speech disorder [Recovered/Resolved]
  - Clumsiness [Unknown]
  - Throat irritation [Unknown]
  - Hand-eye coordination impaired [Recovered/Resolved]

NARRATIVE: CASE EVENT DATE: 20190524
